FAERS Safety Report 6371204-6 (Version None)
Quarter: 2009Q3

REPORT INFORMATION
  Report Type: 
  Country: None (occurrence: None)
  Receive Date: 20090923
  Receipt Date: 20070724
  Transmission Date: 20100115
  Serious: No
  Sender: FDA-Public Use
  Company Number: US-ASTRAZENECA-2007UW05569

PATIENT
  Age: 17628 Day
  Sex: Female
  Weight: 81.6 kg

DRUGS (18)
  1. SEROQUEL [Suspect]
     Indication: DEPRESSION
     Dosage: 300MG 4X/NIGHT
     Route: 048
     Dates: start: 20030828
  2. SEROQUEL [Suspect]
     Indication: ANXIETY
     Dosage: 300MG 4X/NIGHT
     Route: 048
     Dates: start: 20030828
  3. SEROQUEL [Suspect]
     Indication: SLEEP DISORDER
     Dosage: 300MG 4X/NIGHT
     Route: 048
     Dates: start: 20030828
  4. SEROQUEL [Suspect]
     Indication: PSYCHOTIC DISORDER
     Dosage: 300MG 4X/NIGHT
     Route: 048
     Dates: start: 20030828
  5. SEROQUEL [Suspect]
     Dosage: 200-150 MG FLUCTUATING
     Route: 048
     Dates: start: 20040318
  6. SEROQUEL [Suspect]
     Dosage: 200-150 MG FLUCTUATING
     Route: 048
     Dates: start: 20040318
  7. SEROQUEL [Suspect]
     Dosage: 200-150 MG FLUCTUATING
     Route: 048
     Dates: start: 20040318
  8. SEROQUEL [Suspect]
     Dosage: 200-150 MG FLUCTUATING
     Route: 048
     Dates: start: 20040318
  9. LEXAPRO [Concomitant]
  10. NAVANE [Concomitant]
     Dosage: 2 MG, 4 TABLETS AT NIGHT
  11. ABILIFY [Concomitant]
  12. LASIX [Concomitant]
  13. ZELNORM [Concomitant]
     Dosage: 2 MG TWO TIMES A DAY, 5 MG TWO TIMES A DAY
  14. PHENERGAN [Concomitant]
  15. KLONOPIN [Concomitant]
     Route: 048
  16. COLACE [Concomitant]
  17. METFORMIN HCL [Concomitant]
     Dosage: 500-1000 MG
  18. ULTRAM [Concomitant]

REACTIONS (8)
  - ABDOMINAL PAIN UPPER [None]
  - AGORAPHOBIA [None]
  - CONSTIPATION [None]
  - GASTROOESOPHAGEAL REFLUX DISEASE [None]
  - OEDEMA [None]
  - PARANOIA [None]
  - SOMATISATION DISORDER [None]
  - TYPE 2 DIABETES MELLITUS [None]
